FAERS Safety Report 6024527-4 (Version None)
Quarter: 2008Q4

REPORT INFORMATION
  Report Type: 
  Country: None (occurrence: None)
  Receive Date: 20081224
  Receipt Date: 20081216
  Transmission Date: 20090506
  Serious: Yes (Life-Threatening, Hospitalization)
  Sender: FDA-Public Use
  Company Number: 1000001678

PATIENT
  Age: 56 Year
  Sex: Female
  Weight: 63 kg

DRUGS (3)
  1. ESCITALOPRAM [Suspect]
     Indication: DEPRESSION
     Dosage: 20 MG (10 MG, 1 IN 1 D), ORAL
     Route: 048
     Dates: start: 20070810, end: 20080723
  2. TERCIAN (DROPS (FOR ORAL USE)) [Concomitant]
  3. TEMESTA (TABLETS) [Concomitant]

REACTIONS (3)
  - DIARRHOEA [None]
  - LARGE INTESTINE PERFORATION [None]
  - RECTAL HAEMORRHAGE [None]
